FAERS Safety Report 9100386 (Version 1)
Quarter: 2013Q1

REPORT INFORMATION
  Report Type: Report from Study
  Country: DE (occurrence: DE)
  Receive Date: 20130215
  Receipt Date: 20130215
  Transmission Date: 20140127
  Serious: Yes (Hospitalization)
  Sender: FDA-Public Use
  Company Number: DE-ELI_LILLY_AND_COMPANY-DE200701003286

PATIENT
  Sex: Female
  Weight: 70 kg

DRUGS (2)
  1. GEMCITABINE HYDROCHLORIDE [Suspect]
     Indication: BREAST CANCER
     Dosage: 1800 MG, UNKNOWN
     Route: 042
     Dates: start: 20061212, end: 20061212
  2. DOCETAXEL [Suspect]
     Indication: BREAST CANCER
     Dosage: 140 MG, UNKNOWN
     Route: 042
     Dates: start: 20061212, end: 20061212

REACTIONS (2)
  - Chest pain [Recovered/Resolved]
  - Oesophagitis [Recovered/Resolved]
